FAERS Safety Report 23729971 (Version 3)
Quarter: 2024Q2

REPORT INFORMATION
  Report Type: Spontaneous
  Country: US (occurrence: US)
  Receive Date: 20240411
  Receipt Date: 20240530
  Transmission Date: 20240716
  Serious: Yes (Other)
  Sender: FDA-Public Use
  Company Number: US-AstraZeneca-CH-00596898A

PATIENT
  Sex: Female

DRUGS (1)
  1. SOLIRIS [Suspect]
     Active Substance: ECULIZUMAB
     Indication: Paroxysmal nocturnal haemoglobinuria
     Dosage: UNK
     Route: 065

REACTIONS (13)
  - Hypokalaemia [Unknown]
  - Paroxysmal nocturnal haemoglobinuria [Unknown]
  - Condition aggravated [Unknown]
  - Haemoglobin decreased [Unknown]
  - Anaemia [Unknown]
  - Rectal haemorrhage [Unknown]
  - Gait disturbance [Unknown]
  - Heart rate abnormal [Unknown]
  - Muscle disorder [Unknown]
  - Burning sensation [Unknown]
  - Madarosis [Unknown]
  - Quality of life decreased [Unknown]
  - Red blood cell count decreased [Unknown]
